FAERS Safety Report 18488832 (Version 1)
Quarter: 2020Q4

REPORT INFORMATION
  Report Type: Spontaneous
  Country: US (occurrence: US)
  Receive Date: 20201111
  Receipt Date: 20201111
  Transmission Date: 20210114
  Serious: Yes (Disabling, Other)
  Sender: FDA-Public Use
  Company Number: US-EYEPOINT PHARMACEUTICALS, INC.-US-EYP-20-00416

PATIENT
  Age: 68 Year
  Sex: Female

DRUGS (1)
  1. DEXYCU [Suspect]
     Active Substance: DEXAMETHASONE
     Indication: PRODUCT USED FOR UNKNOWN INDICATION
     Route: 031

REACTIONS (5)
  - Depression [Unknown]
  - Impaired driving ability [Unknown]
  - Visual acuity reduced [Unknown]
  - Visual impairment [Unknown]
  - Corneal oedema [Unknown]

NARRATIVE: CASE EVENT DATE: 20200226
